FAERS Safety Report 17564898 (Version 2)
Quarter: 2020Q1

REPORT INFORMATION
  Report Type: Spontaneous
  Country: JP (occurrence: JP)
  Receive Date: 20200320
  Receipt Date: 20200324
  Transmission Date: 20200409
  Serious: Yes (Hospitalization, Other)
  Sender: FDA-Public Use
  Company Number: JP-MACLEODS PHARMACEUTICALS US LTD-MAC2020025756

PATIENT

DRUGS (2)
  1. RIVASTIGMINE. [Suspect]
     Active Substance: RIVASTIGMINE
     Dosage: 5 DOSAGE FORM, 1 TOTAL, 13.5-MG/DAY FORMULA, TRANSDERMAL PATCH
     Route: 062
  2. RIVASTIGMINE. [Suspect]
     Active Substance: RIVASTIGMINE
     Indication: PRODUCT USED FOR UNKNOWN INDICATION
     Dosage: 4 DOSAGE FORM, 1 TOTAL, 9-MG/DAY FORMULA, TRANSDERMAL PATCH
     Route: 062

REACTIONS (7)
  - Accidental overdose [Unknown]
  - Toxicity to various agents [Unknown]
  - Blood pressure increased [Recovered/Resolved]
  - Heart rate increased [Recovered/Resolved]
  - Cholinergic syndrome [Recovered/Resolved]
  - Leukocytosis [Unknown]
  - Wrong product administered [Unknown]
